FAERS Safety Report 5314323-5 (Version None)
Quarter: 2007Q2

REPORT INFORMATION
  Report Type: 
  Country: None (occurrence: None)
  Receive Date: 20070502
  Receipt Date: 20070425
  Transmission Date: 20071010
  Serious: Yes (Death, Other)
  Sender: FDA-Public Use
  Company Number: HQWYE860226APR07

PATIENT
  Sex: Female

DRUGS (2)
  1. ADVIL [Suspect]
     Indication: ARTHRITIS
     Dosage: TWO TABLETS THREE TO FOUR TIMES A DAY
     Route: 048
     Dates: end: 20010101
  2. ADVIL [Suspect]
     Indication: HEADACHE

REACTIONS (2)
  - MOUTH HAEMORRHAGE [None]
  - OVERDOSE [None]
